FAERS Safety Report 4664471-8 (Version None)
Quarter: 2005Q2

REPORT INFORMATION
  Report Type: 
  Country: None (occurrence: None)
  Receive Date: 20050516
  Receipt Date: 20050516
  Transmission Date: 20051028
  Serious: Yes (Other)
  Sender: FDA-Public Use
  Company Number: None

PATIENT
  Age: 49 Year
  Sex: Female
  Weight: 66.2252 kg

DRUGS (1)
  1. BEXTRA [Suspect]
     Indication: PAIN
     Dosage: 1 EVERY 12 HOURS
     Dates: start: 20030121, end: 20030210

REACTIONS (3)
  - ERYTHEMA [None]
  - ORAL MUCOSAL BLISTERING [None]
  - URTICARIA [None]
